FAERS Safety Report 8991413 (Version 1)
Quarter: 2012Q4

REPORT INFORMATION
  Report Type: 
  Country: US (occurrence: US)
  Receive Date: 20121229
  Receipt Date: 20121229
  Transmission Date: 20130627
  Serious: No
  Sender: FDA-Public Use
  Company Number: US-009507513-1212USA009822

PATIENT
  Sex: Female

DRUGS (2)
  1. AZASITE [Suspect]
     Dosage: 2 Gtt, bid for two days
     Route: 047
     Dates: start: 20120922
  2. AZASITE [Suspect]
     Dosage: 2 Gtt, tid for three days

REACTIONS (5)
  - Drug dose omission [Unknown]
  - Product quality issue [Unknown]
  - Accidental exposure to product [Unknown]
  - Inappropriate schedule of drug administration [Unknown]
  - No adverse event [Unknown]
